FAERS Safety Report 15226188 (Version 1)
Quarter: 2018Q3

REPORT INFORMATION
  Report Type: Spontaneous
  Country: US (occurrence: US)
  Receive Date: 20180801
  Receipt Date: 20180801
  Transmission Date: 20181010
  Serious: No
  Sender: FDA-Public Use
  Company Number: US-GLAXOSMITHKLINE-US2018132497

PATIENT
  Sex: Male

DRUGS (2)
  1. FLOVENT DISKUS [Suspect]
     Active Substance: FLUTICASONE PROPIONATE
     Indication: WHEEZING
     Dosage: UNK UNK, Z
     Route: 055
     Dates: start: 201805
  2. VENTOLIN HFA [Suspect]
     Active Substance: ALBUTEROL SULFATE
     Indication: PRODUCT USED FOR UNKNOWN INDICATION
     Dosage: 2 PUFF(S), PRN
     Route: 055
     Dates: start: 201805

REACTIONS (7)
  - Asthma [Unknown]
  - Overdose [Unknown]
  - Sputum increased [Unknown]
  - Cough [Unknown]
  - Ill-defined disorder [Unknown]
  - Drug ineffective [Unknown]
  - Retching [Unknown]
